FAERS Safety Report 6820782 (Version 4)
Quarter: 2013Q1

REPORT INFORMATION
  Report Type: Report from Study
  Country: CA (occurrence: CA)
  Receive Date: 20081125
  Receipt Date: 20130212
  Transmission Date: 20140127
  Serious: Yes (Death, Hospitalization, Other)
  Sender: FDA-Public Use
  Company Number: PHHY2008CA28383

PATIENT
  Age: 37 Year
  Sex: Male

DRUGS (10)
  1. CLOZARIL [Suspect]
     Indication: SCHIZOPHRENIA
     Dosage: UNK
     Dates: start: 20080911, end: 20081031
  2. CLOZARIL [Interacting]
     Dosage: UNK
     Route: 048
     Dates: start: 20090317
  3. CLOZARIL [Interacting]
     Dosage: 200 MG, UNK
     Dates: start: 200911
  4. METHADONE [Concomitant]
     Dosage: 35 MG
  5. RIVOTRIL [Concomitant]
     Dosage: 0.5 MG, QHS
  6. ZYPREXA ZYDIS [Concomitant]
     Dosage: 10 MG, BID, PRN
  7. COCAINE [Concomitant]
     Dosage: UNK
  8. CANNABIS [Concomitant]
     Dosage: UNK
  9. RISPERDAL CONSTA [Concomitant]
     Dosage: 37.5 MG, UNK
  10. RISPERDAL [Concomitant]
     Dosage: 1 MG, HS

REACTIONS (10)
  - Death [Fatal]
  - Drug interaction [Recovered/Resolved]
  - Fall [Recovered/Resolved]
  - Head injury [Recovered/Resolved]
  - Loss of consciousness [Recovered/Resolved]
  - Aggression [Recovered/Resolved]
  - Incoherent [Recovered/Resolved]
  - Agitation [Recovered/Resolved]
  - Pulmonary oedema [Unknown]
  - Toxicity to various agents [Unknown]
